FAERS Safety Report 23565282 (Version 1)
Quarter: 2024Q1

REPORT INFORMATION
  Report Type: Spontaneous
  Country: US (occurrence: US)
  Receive Date: 20240226
  Receipt Date: 20240226
  Transmission Date: 20240410
  Serious: No
  Sender: FDA-Public Use
  Company Number: US-Dermavant-001017

PATIENT
  Age: 73 Year
  Sex: Female

DRUGS (1)
  1. TAPINAROF [Suspect]
     Active Substance: TAPINAROF
     Indication: Psoriasis
     Dosage: AREA OF APPLICATION: UNDER LEFT BREAST
     Route: 061
     Dates: start: 20240207, end: 20240207

REACTIONS (5)
  - Nausea [Not Recovered/Not Resolved]
  - Rhinorrhoea [Recovered/Resolved]
  - Hypoaesthesia oral [Recovering/Resolving]
  - Blood pressure increased [Not Recovered/Not Resolved]
  - Headache [Not Recovered/Not Resolved]

NARRATIVE: CASE EVENT DATE: 20240207
